FAERS Safety Report 7747217-6 (Version None)
Quarter: 2011Q3

REPORT INFORMATION
  Report Type: 
  Country: None (occurrence: None)
  Receive Date: 20110913
  Receipt Date: 20110907
  Transmission Date: 20111222
  Serious: Yes (Other)
  Sender: FDA-Public Use
  Company Number: CA-PFIZER INC-2011209763

PATIENT
  Sex: Female
  Weight: 70.295 kg

DRUGS (3)
  1. TYLENOL-500 [Concomitant]
     Indication: NEURALGIA
     Dosage: AS NEEDED
  2. ADVIL LIQUI-GELS [Concomitant]
     Indication: NEURALGIA
     Dosage: UNK
  3. LYRICA [Suspect]
     Indication: NEURALGIA
     Dosage: 75 MG, DAILY
     Route: 048
     Dates: start: 20110301, end: 20110801

REACTIONS (3)
  - ABDOMINAL DISTENSION [None]
  - RENAL DISORDER [None]
  - ABDOMINAL PAIN UPPER [None]
